FAERS Safety Report 5357200-6 (Version None)
Quarter: 2007Q2

REPORT INFORMATION
  Report Type: 
  Country: None (occurrence: None)
  Receive Date: 20070614
  Receipt Date: 20070604
  Transmission Date: 20071010
  Serious: Yes (Hospitalization)
  Sender: FDA-Public Use
  Company Number: US-AMGEN-STX214520

PATIENT
  Sex: Female

DRUGS (1)
  1. ENBREL [Suspect]
     Indication: RHEUMATOID ARTHRITIS
     Route: 058
     Dates: start: 20010930

REACTIONS (6)
  - COMPRESSION FRACTURE [None]
  - NERVE COMPRESSION [None]
  - OSTEOARTHRITIS [None]
  - OSTEOPOROSIS [None]
  - RHEUMATOID ARTHRITIS [None]
  - SPINAL COMPRESSION FRACTURE [None]
